FAERS Safety Report 7278983-4 (Version None)
Quarter: 2011Q1

REPORT INFORMATION
  Report Type: 
  Country: None (occurrence: None)
  Receive Date: 20110207
  Receipt Date: 20110126
  Transmission Date: 20110831
  Serious: Yes (Hospitalization)
  Sender: FDA-Public Use
  Company Number: PHHO2011US01819

PATIENT
  Sex: Female

DRUGS (9)
  1. FIORICET [Suspect]
     Dosage: UNK
     Dates: start: 20091201, end: 20100518
  2. THERA-GESIC [Concomitant]
     Dosage: UNK
     Dates: start: 20100414
  3. HYDROCHLOROTHIAZIDE [Concomitant]
     Dosage: UNK
     Dates: start: 20050101
  4. AMRIX [Suspect]
  5. PROZAC [Concomitant]
     Dosage: 40 MG, QD
     Dates: start: 20100528
  6. LOTREL [Suspect]
     Dosage: 10/40
     Route: 048
     Dates: start: 20040101
  7. PHENERGAN [Suspect]
  8. LEXAPRO [Suspect]
     Dosage: 10 MG, QD
     Dates: start: 20080101, end: 20100515
  9. NORTRIPTYLINE [Suspect]

REACTIONS (14)
  - RESPIRATORY FAILURE [None]
  - CONFUSIONAL STATE [None]
  - HYPOVENTILATION [None]
  - INTENTIONAL OVERDOSE [None]
  - CONVULSION [None]
  - SUICIDE ATTEMPT [None]
  - HYPOTENSION [None]
  - SUICIDAL IDEATION [None]
  - COMA [None]
  - ARRHYTHMIA [None]
  - HYPOXIA [None]
  - RHABDOMYOLYSIS [None]
  - CARDIAC ARREST [None]
  - VOMITING [None]
